FAERS Safety Report 25478995 (Version 3)
Quarter: 2025Q4

REPORT INFORMATION
  Report Type: Spontaneous
  Country: CN (occurrence: CN)
  Receive Date: 20250625
  Receipt Date: 20251107
  Transmission Date: 20260117
  Serious: No
  Sender: MERCK SHARP & DOHME LLC
  Company Number: CN-009507513-2297025

PATIENT
  Age: 71 Year
  Sex: Female

DRUGS (3)
  1. CILASTATIN SODIUM\IMIPENEM [Suspect]
     Active Substance: CILASTATIN SODIUM\IMIPENEM
     Indication: Wound infection bacterial
     Dosage: START DATE: 21-MAY-2025
     Route: 041
     Dates: start: 20250521, end: 20250526
  2. LINEZOLID [Concomitant]
     Active Substance: LINEZOLID
     Indication: Wound infection staphylococcal
  3. CASPOFUNGIN [Suspect]
     Active Substance: CASPOFUNGIN
     Indication: Wound infection bacterial
     Dates: start: 2025

REACTIONS (4)
  - Drug eruption [Recovering/Resolving]
  - Product use in unapproved indication [Unknown]
  - Drug ineffective for unapproved indication [Unknown]
  - Eosinophil count increased [Not Recovered/Not Resolved]

NARRATIVE: CASE EVENT DATE: 20250101
